FAERS Safety Report 11751169 (Version 1)
Quarter: 2015Q4

REPORT INFORMATION
  Report Type: Spontaneous
  Country: US (occurrence: US)
  Receive Date: 20151118
  Receipt Date: 20151118
  Transmission Date: 20160304
  Serious: No
  Sender: FDA-Public Use
  Company Number: US-ELI_LILLY_AND_COMPANY-US201510008780

PATIENT
  Sex: Male

DRUGS (5)
  1. CIALIS [Suspect]
     Active Substance: TADALAFIL
     Dosage: 5 MG, UNKNOWN
     Route: 065
  2. CIALIS [Suspect]
     Active Substance: TADALAFIL
     Dosage: 10 MG, UNKNOWN
     Route: 065
  3. CIALIS [Suspect]
     Active Substance: TADALAFIL
     Indication: ERECTILE DYSFUNCTION
     Dosage: 5 MG, EVERY OTHER DAY
     Route: 065
     Dates: start: 2006
  4. CIALIS [Suspect]
     Active Substance: TADALAFIL
     Dosage: 10 MG, EVERY OTHER DAY
     Route: 065
     Dates: start: 2006
  5. CIALIS [Suspect]
     Active Substance: TADALAFIL
     Dosage: A HALF OR A QUARTER OF 20MG TABLET, UNKNOWN
     Route: 065
     Dates: start: 2013

REACTIONS (5)
  - Acne [Unknown]
  - Overdose [Unknown]
  - Nasal discomfort [Recovered/Resolved]
  - Drug ineffective [Recovered/Resolved]
  - Wrong technique in product usage process [Unknown]

NARRATIVE: CASE EVENT DATE: 2006
